FAERS Safety Report 15556750 (Version 1)
Quarter: 2018Q4

REPORT INFORMATION
  Report Type: Spontaneous
  Country: US (occurrence: US)
  Receive Date: 20181026
  Receipt Date: 20181026
  Transmission Date: 20190205
  Serious: Yes (Other)
  Sender: FDA-Public Use
  Company Number: US-AMGEN-USASP2018147368

PATIENT
  Age: 74 Year
  Sex: Female

DRUGS (1)
  1. PROLIA [Suspect]
     Active Substance: DENOSUMAB
     Indication: PSORIATIC ARTHROPATHY
     Dosage: 60 MG, UNK
     Route: 065
     Dates: start: 2014

REACTIONS (12)
  - Weight decreased [Unknown]
  - Tooth fracture [Unknown]
  - Muscle spasms [Unknown]
  - Oral disorder [Not Recovered/Not Resolved]
  - Exostosis [Unknown]
  - Gingival bleeding [Unknown]
  - Toothache [Unknown]
  - Tooth disorder [Unknown]
  - Scoliosis [Unknown]
  - Dysstasia [Unknown]
  - Off label use [Unknown]
  - Pain in extremity [Unknown]
